FAERS Safety Report 8230942-0 (Version None)
Quarter: 2012Q1

REPORT INFORMATION
  Report Type: 
  Country: None (occurrence: None)
  Receive Date: 20120323
  Receipt Date: 20120313
  Transmission Date: 20120608
  Serious: Yes (Hospitalization)
  Sender: FDA-Public Use
  Company Number: JP-ELI_LILLY_AND_COMPANY-JP201012003849

PATIENT
  Sex: Female
  Weight: 42 kg

DRUGS (10)
  1. ARICEPT [Concomitant]
     Indication: DEMENTIA ALZHEIMER'S TYPE
     Dosage: 3 MG, DAILY (1/D)
     Route: 048
     Dates: start: 20101029, end: 20101104
  2. CYMBALTA [Suspect]
     Indication: DEPRESSION
     Dosage: 60 MG, DAILY (1/D)
     Route: 048
     Dates: start: 20100825, end: 20101122
  3. ACETAMINOPHEN [Concomitant]
     Dosage: 200 MG, AS NEEDED
     Route: 048
     Dates: start: 20101102, end: 20101108
  4. ROHYPNOL [Concomitant]
     Indication: INSOMNIA
     Dosage: 1 MG, DAILY (1/D)
     Route: 048
     Dates: end: 20101031
  5. LENDORMIN [Concomitant]
     Dosage: 0.25 MG, DAILY (1/D)
     Route: 048
     Dates: start: 20101020, end: 20101106
  6. CRESTOR [Concomitant]
     Indication: DYSLIPIDAEMIA
     Dosage: 2.5 MG, DAILY (1/D)
     Route: 048
     Dates: start: 20101102, end: 20101115
  7. ARICEPT [Concomitant]
     Dosage: 5 MG, DAILY (1/D)
     Route: 048
     Dates: start: 20101105, end: 20101108
  8. MAGNESIUM SULFATE [Concomitant]
     Indication: CONSTIPATION
     Dosage: 500 MG, DAILY (1/D)
     Route: 048
     Dates: start: 20101102, end: 20101116
  9. MAGNESIUM SULFATE [Concomitant]
     Dosage: 1 G, DAILY (1/D)
     Route: 048
     Dates: start: 20101117, end: 20101121
  10. LENDORMIN [Concomitant]
     Indication: INSOMNIA
     Dosage: 0.5 MG, DAILY (1/D)
     Route: 048
     Dates: end: 20101019

REACTIONS (2)
  - DELIRIUM [None]
  - DRUG INTERACTION [None]
